FAERS Safety Report 20501662 (Version 3)
Quarter: 2022Q4

REPORT INFORMATION
  Report Type: Other
  Country: IT (occurrence: None)
  Receive Date: 20220222
  Receipt Date: 20221214
  Transmission Date: 20230113
  Serious: No
  Sender: FDA-Public Use
  Company Number: IT-ROCHE-3031336

PATIENT
  Age: 38 Year
  Sex: Female
  Weight: 91 kg

DRUGS (2)
  1. OCRELIZUMAB [Suspect]
     Active Substance: OCRELIZUMAB
     Indication: Relapsing-remitting multiple sclerosis
     Dosage: SHE RECEIVED SUBSEQUENT DOSE ON 14OCT/2020, 24/SEP/2020
     Route: 042
     Dates: start: 20200924
  2. OCRELIZUMAB [Suspect]
     Active Substance: OCRELIZUMAB
     Dosage: SHE RECEIVED SUBSEQUENT DOSE ON , 05/OCT/2021,13/APR/2022, 12/OCT/2022
     Route: 065
     Dates: start: 20210408, end: 20210408

REACTIONS (1)
  - Influenza [Recovered/Resolved]

NARRATIVE: CASE EVENT DATE: 20220118
